FAERS Safety Report 10983412 (Version 3)
Quarter: 2015Q2

REPORT INFORMATION
  Report Type: Spontaneous
  Country: BR (occurrence: BR)
  Receive Date: 20150403
  Receipt Date: 20150430
  Transmission Date: 20150821
  Serious: Yes (Other)
  Sender: FDA-Public Use
  Company Number: BR-PFIZER INC-2015112341

PATIENT
  Age: 42 Year
  Sex: Male

DRUGS (4)
  1. MIONEVRIX [Concomitant]
     Active Substance: CARISOPRODOL\CYANOCOBALAMIN\METAMIZOLE\PYRIDOXINE\THIAMINE
     Indication: RELAXATION THERAPY
     Dosage: UNK
     Dates: start: 201503, end: 20150331
  2. LYRICA [Suspect]
     Active Substance: PREGABALIN
     Indication: FIBROMYALGIA
     Dosage: 75 MG, 1X/DAY (AT NIGHT)
     Route: 048
     Dates: start: 201503, end: 20150331
  3. LYRICA [Suspect]
     Active Substance: PREGABALIN
     Indication: ARTHRITIS
  4. MIONEVRIX [Concomitant]
     Active Substance: CARISOPRODOL\CYANOCOBALAMIN\METAMIZOLE\PYRIDOXINE\THIAMINE
     Indication: SLEEP DISORDER

REACTIONS (6)
  - Impaired work ability [Recovered/Resolved]
  - Feeding disorder [Recovered/Resolved]
  - Oropharyngeal pain [Recovered/Resolved]
  - Distractibility [Recovered/Resolved]
  - Nodule [Recovered/Resolved]
  - Dengue fever [Recovered/Resolved]

NARRATIVE: CASE EVENT DATE: 201503
